FAERS Safety Report 23179002 (Version 2)
Quarter: 2024Q4

REPORT INFORMATION
  Report Type: Spontaneous
  Country: ZA (occurrence: ZA)
  Receive Date: 20231113
  Receipt Date: 20241126
  Transmission Date: 20250114
  Serious: Yes (Other)
  Sender: PFIZER
  Company Number: ZA-PFIZER INC-202300359236

PATIENT
  Age: 37 Year
  Sex: Female

DRUGS (5)
  1. METHOTREXATE SODIUM [Suspect]
     Active Substance: METHOTREXATE SODIUM
     Dosage: 20 MG, WEEKLY
     Dates: start: 20150401
  2. MABTHERA [Suspect]
     Active Substance: RITUXIMAB
     Dosage: 1 G, 2X/DAY
     Dates: start: 20170904
  3. ACTEMRA [Suspect]
     Active Substance: TOCILIZUMAB
     Dosage: 640 MG, MONTHLY
     Dates: start: 20160810, end: 20170808
  4. ARAVA [Concomitant]
     Active Substance: LEFLUNOMIDE
     Dosage: UNK
     Dates: start: 20150101, end: 20150501
  5. ORENCIA [Concomitant]
     Active Substance: ABATACEPT
     Dosage: 750 MG, MONTHLY
     Dates: start: 20150916, end: 20160715

REACTIONS (19)
  - Low density lipoprotein increased [Unknown]
  - Blood chloride increased [Recovered/Resolved]
  - Carbon dioxide decreased [Recovered/Resolved]
  - Alanine aminotransferase increased [Recovered/Resolved]
  - Blood cholesterol increased [Recovered/Resolved]
  - Blood thyroid stimulating hormone decreased [Recovered/Resolved]
  - Thyroxine free increased [Recovered/Resolved]
  - Red blood cell count decreased [Unknown]
  - Haematocrit decreased [Recovered/Resolved]
  - Mean cell volume increased [Unknown]
  - Mean platelet volume decreased [Recovered/Resolved]
  - Platelet count decreased [Unknown]
  - White blood cell count decreased [Unknown]
  - Monocyte count increased [Unknown]
  - Aspartate aminotransferase increased [Recovered/Resolved]
  - B-lymphocyte count decreased [Unknown]
  - Basophil count decreased [Unknown]
  - Neutrophil count decreased [Unknown]
  - White blood cell count increased [Recovered/Resolved]

NARRATIVE: CASE EVENT DATE: 20150520
